FAERS Safety Report 24345978 (Version 1)
Quarter: 2024Q3

REPORT INFORMATION
  Report Type: Spontaneous
  Country: US (occurrence: US)
  Receive Date: 20240920
  Receipt Date: 20240920
  Transmission Date: 20241016
  Serious: No
  Sender: SUNOVION
  Company Number: US-SMPA-2024SPA001954AA

PATIENT

DRUGS (2)
  1. GEMTESA [Suspect]
     Active Substance: VIBEGRON
     Dosage: UNK
     Route: 048
  2. OXYBUTYNIN [Concomitant]
     Active Substance: OXYBUTYNIN\OXYBUTYNIN CHLORIDE
     Dosage: UNTILL 2 WEEKS
     Route: 065

REACTIONS (7)
  - Myalgia [Unknown]
  - Back pain [Unknown]
  - Cough [Unknown]
  - Asthenia [Unknown]
  - Fatigue [Unknown]
  - Hot flush [Unknown]
  - Rhinorrhoea [Unknown]
